FAERS Safety Report 5150881-1 (Version None)
Quarter: 2006Q4

REPORT INFORMATION
  Report Type: 
  Country: None (occurrence: None)
  Receive Date: 20061114
  Receipt Date: 20061102
  Transmission Date: 20070319
  Serious: Yes (Other)
  Sender: FDA-Public Use
  Company Number: US-ELI_LILLY_AND_COMPANY-US200611000555

PATIENT
  Age: 81 Year
  Sex: Male

DRUGS (3)
  1. HUMALOG MIX 75/25 [Suspect]
     Indication: DIABETES MELLITUS
     Dosage: 40 UNITS IN AM, 4 UNITS IN PM
     Dates: start: 20061027
  2. HUMALOG MIX 75/25 [Suspect]
     Dosage: 40 U, EACH MORNING
  3. HUMALOG MIX 75/25 [Suspect]
     Dosage: UNK U, EACH EVENING
     Dates: end: 20061026

REACTIONS (6)
  - BLOOD GLUCOSE DECREASED [None]
  - BLOOD GLUCOSE INCREASED [None]
  - MUSCLE SPASMS [None]
  - RENAL FAILURE [None]
  - TREMOR [None]
  - VISUAL ACUITY REDUCED [None]
